FAERS Safety Report 16766377 (Version 1)
Quarter: 2019Q3

REPORT INFORMATION
  Report Type: Spontaneous
  Country: BR (occurrence: BR)
  Receive Date: 20190903
  Receipt Date: 20190903
  Transmission Date: 20191005
  Serious: Yes (Other)
  Sender: FDA-Public Use
  Company Number: BR-SA-2019SA239035

PATIENT
  Sex: Female

DRUGS (1)
  1. LEMTRADA [Suspect]
     Active Substance: ALEMTUZUMAB
     Dosage: UNK
     Route: 041
     Dates: start: 201810

REACTIONS (4)
  - Pericardial disease [Unknown]
  - Oedema peripheral [Unknown]
  - Leishmaniasis [Unknown]
  - Pleural disorder [Unknown]

NARRATIVE: CASE EVENT DATE: 201904
